FAERS Safety Report 7411718-0 (Version None)
Quarter: 2011Q2

REPORT INFORMATION
  Report Type: 
  Country: None (occurrence: None)
  Receive Date: 20110413
  Receipt Date: 20101123
  Transmission Date: 20111010
  Serious: Yes (Other)
  Sender: FDA-Public Use
  Company Number: US-BRISTOL-MYERS SQUIBB COMPANY-15403223

PATIENT
  Sex: Male

DRUGS (1)
  1. ERBITUX [Suspect]
     Indication: TONSIL CANCER
     Dosage: STANDARD DOSE;STARTED COUPLE OF YEARS AGO
     Route: 042

REACTIONS (1)
  - NEOPLASM MALIGNANT [None]
